FAERS Safety Report 7316134-8 (Version None)
Quarter: 2011Q1

REPORT INFORMATION
  Report Type: 
  Country: None (occurrence: None)
  Receive Date: 20110225
  Receipt Date: 20110221
  Transmission Date: 20110831
  Serious: Yes (Death)
  Sender: FDA-Public Use
  Company Number: BR-PFIZER INC-2011038312

PATIENT

DRUGS (2)
  1. PRISTIQ [Suspect]
     Dosage: 50 MG, UNK
     Route: 048
     Dates: start: 20101201
  2. LEXAPRO [Concomitant]
     Dosage: UNK
     Dates: end: 20101201

REACTIONS (1)
  - COMPLETED SUICIDE [None]
